FAERS Safety Report 8143750-6 (Version None)
Quarter: 2012Q1

REPORT INFORMATION
  Report Type: 
  Country: None (occurrence: None)
  Receive Date: 20120103
  Receipt Date: 20111025
  Transmission Date: 20120608
  Serious: No
  Sender: FDA-Public Use
  Company Number: AE-2011-002106

PATIENT
  Age: 67 Year
  Sex: Female
  Weight: 66.6788 kg

DRUGS (6)
  1. INCIVEK [Suspect]
     Dosage: 2250 MG (750 MG, 3 IN 1 D), ORAL
     Route: 048
     Dates: start: 20110928
  2. STADOL [Concomitant]
  3. ENALAPRIL MALEATE [Concomitant]
  4. PEGASYS [Concomitant]
  5. RIBAVIRIN [Concomitant]
  6. BETHANECHOL (BETHANECHOL) [Concomitant]

REACTIONS (2)
  - DIARRHOEA [None]
  - HAEMORRHOIDS [None]
